FAERS Safety Report 6639835-3 (Version None)
Quarter: 2010Q1

REPORT INFORMATION
  Report Type: 
  Country: None (occurrence: None)
  Receive Date: 20100318
  Receipt Date: 20100312
  Transmission Date: 20100710
  Serious: Yes (Hospitalization, Other)
  Sender: FDA-Public Use
  Company Number: DE-BRISTOL-MYERS SQUIBB COMPANY-14532790

PATIENT
  Age: 41 Year
  Sex: Female
  Weight: 68 kg

DRUGS (3)
  1. ABILIFY [Suspect]
     Indication: SCHIZOAFFECTIVE DISORDER
     Route: 048
     Dates: start: 20050701, end: 20090305
  2. VALPROATE SODIUM [Suspect]
     Indication: MOOD SWINGS
     Route: 048
     Dates: start: 20060901, end: 20090305
  3. FLUOXETINE [Suspect]
     Indication: DEPRESSION
     Route: 048
     Dates: start: 20050201, end: 20090619

REACTIONS (4)
  - CAESAREAN SECTION [None]
  - NORMAL NEWBORN [None]
  - PREGNANCY [None]
  - VAGINAL HAEMORRHAGE [None]
